FAERS Safety Report 15753928 (Version 1)
Quarter: 2018Q4

REPORT INFORMATION
  Report Type: Other
  Country: ES (occurrence: ES)
  Receive Date: 20181222
  Receipt Date: 20181222
  Transmission Date: 20190205
  Serious: Yes (Life-Threatening)
  Sender: FDA-Public Use
  Company Number: ES-APOTEX-2018AP027645

PATIENT
  Age: 46 Year
  Sex: Male

DRUGS (6)
  1. AMOXICILLIN, CLAVULANATE [Suspect]
     Active Substance: AMOXICILLIN\CLAVULANATE POTASSIUM
     Indication: OTITIS MEDIA ACUTE
     Dosage: 1 DF, TID
     Route: 048
     Dates: start: 20180914, end: 20180921
  2. TETRABENAZINA [Concomitant]
     Indication: HUNTINGTON^S DISEASE
     Dosage: 1 DF, TID
     Route: 048
     Dates: start: 20180910
  3. ESCITALOPRAM [Concomitant]
     Active Substance: ESCITALOPRAM OXALATE
     Indication: PERSISTENT DEPRESSIVE DISORDER
     Dosage: 1 DF, QD
     Route: 048
     Dates: start: 20110323
  4. CLONAZEPAM. [Concomitant]
     Active Substance: CLONAZEPAM
     Indication: HUNTINGTON^S DISEASE
     Dosage: 1 DF, TID
     Route: 048
     Dates: start: 20170728
  5. HALOPERIDOL. [Concomitant]
     Active Substance: HALOPERIDOL
     Indication: HUNTINGTON^S DISEASE
     Dosage: 0.2 MG, BID
     Route: 048
     Dates: start: 20180910
  6. HIDROFEROL [Concomitant]
     Active Substance: CALCIFEDIOL
     Indication: VITAMIN D DEFICIENCY
     Dosage: 16000 IU, QD
     Route: 048
     Dates: start: 20180406

REACTIONS (1)
  - Lethargy [Recovering/Resolving]

NARRATIVE: CASE EVENT DATE: 20180920
